FAERS Safety Report 16181487 (Version 3)
Quarter: 2020Q4

REPORT INFORMATION
  Report Type: Report from Study
  Country: JP (occurrence: JP)
  Receive Date: 20190410
  Receipt Date: 20201224
  Transmission Date: 20210113
  Serious: Yes (Other)
  Sender: FDA-Public Use
  Company Number: JP-JNJFOC-20190406645

PATIENT
  Age: 73 Year
  Sex: Female
  Weight: 55 kg

DRUGS (23)
  1. DARZALEX [Suspect]
     Active Substance: DARATUMUMAB
     Route: 041
     Dates: start: 20180308, end: 20180308
  2. DEXAMETHASONE. [Concomitant]
     Active Substance: DEXAMETHASONE
     Indication: PLASMA CELL MYELOMA
     Route: 065
     Dates: start: 20180129, end: 20180130
  3. DEXAMETHASONE. [Concomitant]
     Active Substance: DEXAMETHASONE
     Indication: PLASMA CELL MYELOMA
     Route: 065
     Dates: start: 20180322, end: 20180323
  4. DARZALEX [Suspect]
     Active Substance: DARATUMUMAB
     Route: 041
     Dates: start: 20180205, end: 20180205
  5. DARZALEX [Suspect]
     Active Substance: DARATUMUMAB
     Route: 041
     Dates: start: 20180129, end: 20180129
  6. DARZALEX [Suspect]
     Active Substance: DARATUMUMAB
     Route: 041
     Dates: start: 20180215, end: 20180215
  7. LENALIDOMIDE [Concomitant]
     Active Substance: LENALIDOMIDE
     Route: 048
     Dates: start: 20180122
  8. DEXAMETHASONE. [Concomitant]
     Active Substance: DEXAMETHASONE
     Indication: PLASMA CELL MYELOMA
     Route: 065
     Dates: start: 20180122, end: 20180123
  9. DEXAMETHASONE. [Concomitant]
     Active Substance: DEXAMETHASONE
     Indication: PLASMA CELL MYELOMA
     Route: 065
     Dates: start: 20180330, end: 20180330
  10. DEXAMETHASONE. [Concomitant]
     Active Substance: DEXAMETHASONE
     Indication: PLASMA CELL MYELOMA
     Route: 065
     Dates: start: 20180222, end: 20180223
  11. DEXAMETHASONE. [Concomitant]
     Active Substance: DEXAMETHASONE
     Indication: PLASMA CELL MYELOMA
     Route: 065
     Dates: start: 20180301, end: 20180302
  12. DEXAMETHASONE. [Concomitant]
     Active Substance: DEXAMETHASONE
     Indication: PLASMA CELL MYELOMA
     Route: 065
     Dates: start: 20180308, end: 20180309
  13. DARZALEX [Suspect]
     Active Substance: DARATUMUMAB
     Indication: PLASMA CELL MYELOMA
     Route: 041
     Dates: start: 20180122, end: 20180122
  14. DARZALEX [Suspect]
     Active Substance: DARATUMUMAB
     Route: 041
     Dates: start: 20180322, end: 20180322
  15. DEXAMETHASONE. [Concomitant]
     Active Substance: DEXAMETHASONE
     Indication: PLASMA CELL MYELOMA
     Route: 065
     Dates: start: 20180215, end: 20180216
  16. DARZALEX [Suspect]
     Active Substance: DARATUMUMAB
     Route: 041
     Dates: start: 20180301, end: 20180301
  17. DARZALEX [Suspect]
     Active Substance: DARATUMUMAB
     Route: 041
     Dates: start: 20180315, end: 20180315
  18. DARZALEX [Suspect]
     Active Substance: DARATUMUMAB
     Route: 041
     Dates: start: 20180405, end: 20180405
  19. DEXAMETHASONE. [Concomitant]
     Active Substance: DEXAMETHASONE
     Indication: PLASMA CELL MYELOMA
     Route: 065
     Dates: start: 20180205, end: 20180206
  20. DEXAMETHASONE. [Concomitant]
     Active Substance: DEXAMETHASONE
     Indication: PLASMA CELL MYELOMA
     Route: 065
     Dates: start: 20180315, end: 20180316
  21. DEXAMETHASONE. [Concomitant]
     Active Substance: DEXAMETHASONE
     Indication: PLASMA CELL MYELOMA
     Route: 065
     Dates: start: 20180405, end: 20180406
  22. DEXAMETHASONE. [Concomitant]
     Active Substance: DEXAMETHASONE
     Indication: PLASMA CELL MYELOMA
     Route: 065
     Dates: start: 20180413, end: 20180413
  23. DARZALEX [Suspect]
     Active Substance: DARATUMUMAB
     Route: 041
     Dates: start: 20180222, end: 20180222

REACTIONS (2)
  - Sinus node dysfunction [Recovered/Resolved]
  - Bradycardia [Recovered/Resolved]

NARRATIVE: CASE EVENT DATE: 20180122
